FAERS Safety Report 9168577 (Version 1)
Quarter: 2013Q1

REPORT INFORMATION
  Report Type: Report from Study
  Country: US (occurrence: US)
  Receive Date: 20130318
  Receipt Date: 20130318
  Transmission Date: 20140127
  Serious: Yes (Hospitalization, Other)
  Sender: FDA-Public Use
  Company Number: US-BRISTOL-MYERS SQUIBB COMPANY-14019392

PATIENT
  Age: 62 Year
  Sex: Female

DRUGS (9)
  1. IPILIMUMAB [Suspect]
     Indication: MALIGNANT MELANOMA
     Dosage: (619MG) ON 02OCT07?(623MG) ON 22OCT07
     Route: 042
     Dates: start: 20071002
  2. OXYCONTIN [Concomitant]
     Dosage: 10 MG, PO, Q12.
     Route: 048
  3. OXYCODONE [Concomitant]
     Indication: PAIN
     Dosage: 5 MG, PO, Q4-6, PRN.
     Route: 048
  4. CALCIUM SUPPLEMENT [Concomitant]
  5. RESTASIS [Concomitant]
     Indication: DRY EYE
  6. SERESTA [Concomitant]
     Indication: SLEEP DISORDER
     Route: 048
  7. ATARAX [Concomitant]
  8. FOSAMAX [Concomitant]
  9. CENESTIN [Concomitant]

REACTIONS (2)
  - Dyspnoea [Recovered/Resolved with Sequelae]
  - Pain in extremity [Not Recovered/Not Resolved]
